FAERS Safety Report 23135610 (Version 2)
Quarter: 2023Q4

REPORT INFORMATION
  Report Type: Spontaneous
  Country: US (occurrence: US)
  Receive Date: 20231101
  Receipt Date: 20231106
  Transmission Date: 20240110
  Serious: Yes (Other)
  Sender: FDA-Public Use
  Company Number: US-PFIZER INC-PV202300179160

PATIENT
  Age: 73 Year
  Sex: Female
  Weight: 94.6 kg

DRUGS (4)
  1. IBRANCE [Suspect]
     Active Substance: PALBOCICLIB
     Indication: Breast cancer female
     Dosage: 125 MG, DAILY
     Route: 048
  2. IBRANCE [Suspect]
     Active Substance: PALBOCICLIB
     Dosage: 100 MG, 3 WEEKS ON AND 1 WEEK OFF
     Route: 048
     Dates: start: 20231003
  3. FASLODEX [Suspect]
     Active Substance: FULVESTRANT
     Indication: Breast cancer female
     Dosage: EVERY 4 WEEKS
  4. XGEVA [Suspect]
     Active Substance: DENOSUMAB
     Indication: Breast cancer female
     Dosage: EVERY 4 WEEKS STARTED LOCALLY

REACTIONS (3)
  - Shoulder operation [Unknown]
  - Neutropenia [Unknown]
  - Neoplasm progression [Unknown]
